FAERS Safety Report 7197603-0 (Version None)
Quarter: 2010Q4

REPORT INFORMATION
  Report Type: 
  Country: None (occurrence: None)
  Receive Date: 20101213
  Receipt Date: 20101130
  Transmission Date: 20110411
  Serious: No
  Sender: FDA-Public Use
  Company Number: PHHY2010IT82505

PATIENT
  Age: 85 Year
  Sex: Male

DRUGS (2)
  1. SIRDALUD (TIZANIDINE HYDROCHLORIDE) TABLET [Suspect]
     Indication: MUSCULOSKELETAL PAIN
     Dosage: 1 TABLET ORAL
     Route: 048
     Dates: start: 20101117, end: 20101117
  2. FLUAD 2010/2011 (NVD) (INFLUENZA VACCINE, B/BRISBANE/60/2008 15 UG, A/ [Suspect]
     Indication: IMMUNISATION
     Dosage: INJECTION NOS
     Dates: start: 20101117, end: 20101117

REACTIONS (3)
  - MUSCULOSKELETAL PAIN [None]
  - PRESYNCOPE [None]
  - PYREXIA [None]
